FAERS Safety Report 16373276 (Version 1)
Quarter: 2019Q2

REPORT INFORMATION
  Report Type: Report from Study
  Country: US (occurrence: US)
  Receive Date: 20190530
  Receipt Date: 20190530
  Transmission Date: 20190711
  Serious: Yes (Hospitalization, Other)
  Sender: FDA-Public Use
  Company Number: US-ACTELION-A-NJ2018-166006

PATIENT
  Age: 47 Year
  Sex: Male
  Weight: 135.15 kg

DRUGS (3)
  1. ADCIRCA [Concomitant]
     Active Substance: TADALAFIL
  2. TYVASO [Suspect]
     Active Substance: TREPROSTINIL
     Indication: PRODUCT USED FOR UNKNOWN INDICATION
     Dosage: 8 BREATHS, QID
     Route: 055
  3. OPSUMIT [Suspect]
     Active Substance: MACITENTAN
     Indication: PULMONARY ARTERIAL HYPERTENSION
     Dosage: 10 MG, QD
     Route: 048
     Dates: start: 20140731

REACTIONS (27)
  - Abdominal pain upper [Unknown]
  - Cough [Unknown]
  - Dry throat [Unknown]
  - Malaise [Not Recovered/Not Resolved]
  - Fatigue [Unknown]
  - Oropharyngeal pain [Unknown]
  - Nausea [Unknown]
  - Influenza [Unknown]
  - Gastrointestinal disorder [Unknown]
  - Palpitations [Unknown]
  - Dizziness [Recovered/Resolved]
  - Diabetes mellitus [Unknown]
  - Product dose omission [Recovered/Resolved]
  - Influenza like illness [Unknown]
  - Vomiting [Unknown]
  - Throat irritation [Unknown]
  - Unevaluable event [Unknown]
  - Dyspnoea [Recovered/Resolved]
  - Hepatitis C [Unknown]
  - Headache [Unknown]
  - Lacrimation increased [Unknown]
  - Gallbladder enlargement [Unknown]
  - Nasal congestion [Unknown]
  - Gallbladder disorder [Unknown]
  - Cholelithiasis [Unknown]
  - Body temperature increased [Unknown]
  - Rhinorrhoea [Unknown]

NARRATIVE: CASE EVENT DATE: 2018
